FAERS Safety Report 4952415-0 (Version None)
Quarter: 2006Q1

REPORT INFORMATION
  Report Type: 
  Country: None (occurrence: None)
  Receive Date: 20060323
  Receipt Date: 20050707
  Transmission Date: 20060701
  Serious: Yes (Hospitalization)
  Sender: FDA-Public Use
  Company Number: US-MERCK-0507USA01361

PATIENT
  Age: 66 Year
  Sex: Male
  Weight: 86 kg

DRUGS (14)
  1. VIOXX [Suspect]
     Indication: OSTEOARTHRITIS
     Route: 048
     Dates: start: 20010101, end: 20040101
  2. AVAPRO [Concomitant]
     Route: 065
     Dates: start: 20010601
  3. HYTRIN [Concomitant]
     Route: 065
     Dates: start: 20020101
  4. HYDRODIURIL [Concomitant]
     Route: 065
     Dates: start: 20010101
  5. LASIX [Concomitant]
     Route: 065
     Dates: start: 20010101
  6. ASPIRIN [Concomitant]
     Route: 065
     Dates: start: 19900101
  7. LIPITOR [Concomitant]
     Route: 065
     Dates: start: 20000101
  8. LIPITOR [Concomitant]
     Route: 065
     Dates: start: 20000101
  9. ZOCOR [Concomitant]
     Route: 065
     Dates: start: 20000101
  10. ACIPHEX [Concomitant]
     Route: 065
  11. FOLIC ACID [Concomitant]
     Route: 065
  12. PROZAC [Concomitant]
     Route: 065
  13. TIAZAC [Concomitant]
     Route: 065
  14. VITAMINS (UNSPECIFIED) [Concomitant]
     Route: 065

REACTIONS (5)
  - CHRONIC OBSTRUCTIVE PULMONARY DISEASE [None]
  - DYSPNOEA [None]
  - HYPOXIA [None]
  - MYOCARDIAL INFARCTION [None]
  - SLEEP APNOEA SYNDROME [None]
